FAERS Safety Report 25810356 (Version 1)
Quarter: 2025Q3

REPORT INFORMATION
  Report Type: Spontaneous
  Country: JP (occurrence: JP)
  Receive Date: 20250917
  Receipt Date: 20250917
  Transmission Date: 20251021
  Serious: Yes (Hospitalization, Other)
  Sender: GLAND PHARMA LTD
  Company Number: JP-GLANDPHARMA-JP-2025GLNLIT01840

PATIENT
  Age: 8 Decade
  Sex: Female
  Weight: 55 kg

DRUGS (2)
  1. ERIBULIN MESYLATE [Suspect]
     Active Substance: ERIBULIN MESYLATE
     Indication: Breast cancer
     Route: 065
  2. TENOFOVIR [Concomitant]
     Active Substance: TENOFOVIR
     Route: 065

REACTIONS (4)
  - Pyelonephritis [Recovered/Resolved]
  - Bacteraemia [Recovered/Resolved]
  - Candida infection [Recovered/Resolved]
  - Neutropenia [Recovered/Resolved]
